FAERS Safety Report 15144128 (Version 1)
Quarter: 2018Q3

REPORT INFORMATION
  Report Type: Report from Study
  Country: US (occurrence: PR)
  Receive Date: 20180713
  Receipt Date: 20180713
  Transmission Date: 20181010
  Serious: Yes (Hospitalization, Other)
  Sender: FDA-Public Use
  Company Number: US-MALLINCKRODT-T201801662

PATIENT
  Sex: Male

DRUGS (2)
  1. REPOSITORY CORTICOTROPIN INJECTION [Suspect]
     Active Substance: CORTICOTROPIN
     Indication: NEPHRITIC SYNDROME
     Dosage: 80 UNITS / 1 ML 2 TIMES PER WEEK MONDAY, THURSDAY
     Route: 058
     Dates: start: 2018
  2. REPOSITORY CORTICOTROPIN INJECTION [Suspect]
     Active Substance: CORTICOTROPIN
     Indication: GLOMERULONEPHRITIS MEMBRANOUS
     Dosage: 40 UNITS / .5 ML
     Route: 058
     Dates: start: 20180404, end: 2018

REACTIONS (4)
  - Swelling [Unknown]
  - Condition aggravated [Unknown]
  - Generalised oedema [Unknown]
  - Nephritic syndrome [Unknown]

NARRATIVE: CASE EVENT DATE: 2018
